FAERS Safety Report 18094719 (Version 2)
Quarter: 2020Q3

REPORT INFORMATION
  Report Type: Report from Study
  Country: MX (occurrence: MX)
  Receive Date: 20200730
  Receipt Date: 20200812
  Transmission Date: 20201103
  Serious: Yes (Other)
  Sender: FDA-Public Use
  Company Number: NVSC2020MX211863

PATIENT
  Age: 52 Year
  Sex: Female
  Weight: 65 kg

DRUGS (2)
  1. GALVUS MET [Suspect]
     Active Substance: METFORMIN HYDROCHLORIDE\VILDAGLIPTIN
     Indication: DIABETES MELLITUS
     Dosage: 1 DF, BID  (850/50 MG) (IN THE MORNING AND AT NIGHTIN THE MORNING AND AT NIGHTIN THE MORNING AND AT
     Route: 048
  2. METFORMIN HYDROCHLORIDE AND GLIBENCLAMIDE [Concomitant]
     Indication: DIABETES MELLITUS
     Dosage: 1 DF, QD ((500/5 MG)) AT NN, STARTED 3 YEARS AGO
     Route: 048

REACTIONS (8)
  - Hernia [Not Recovered/Not Resolved]
  - Pruritus [Recovered/Resolved]
  - Intervertebral disc protrusion [Recovered/Resolved]
  - Paraesthesia [Recovered/Resolved]
  - Sciatica [Recovered/Resolved]
  - Muscle spasms [Not Recovered/Not Resolved]
  - Sciatica [Not Recovered/Not Resolved]
  - Hypoaesthesia [Not Recovered/Not Resolved]

NARRATIVE: CASE EVENT DATE: 2018
